FAERS Safety Report 21613225 (Version 3)
Quarter: 2023Q1

REPORT INFORMATION
  Report Type: Spontaneous
  Country: US (occurrence: US)
  Receive Date: 20221118
  Receipt Date: 20230329
  Transmission Date: 20230418
  Serious: Yes (Death, Other)
  Sender: FDA-Public Use
  Company Number: US-CIPLA (EU) LIMITED-2022US06645

PATIENT

DRUGS (11)
  1. LENALIDOMIDE [Suspect]
     Active Substance: LENALIDOMIDE
     Indication: Plasma cell myeloma
     Dosage: UNK
     Route: 065
  2. CYCLOPHOSPHAMIDE [Suspect]
     Active Substance: CYCLOPHOSPHAMIDE
     Indication: Leukaemia
     Dosage: UNK
     Route: 065
  3. CYCLOPHOSPHAMIDE [Suspect]
     Active Substance: CYCLOPHOSPHAMIDE
     Indication: B precursor type acute leukaemia
  4. VINCRISTINE [Suspect]
     Active Substance: VINCRISTINE
     Indication: Leukaemia
     Dosage: UNK
     Route: 065
  5. VINCRISTINE [Suspect]
     Active Substance: VINCRISTINE
     Indication: B precursor type acute leukaemia
  6. DEXAMETHASONE [Suspect]
     Active Substance: DEXAMETHASONE
     Indication: Leukaemia
     Dosage: UNK
     Route: 065
  7. DEXAMETHASONE [Suspect]
     Active Substance: DEXAMETHASONE
     Indication: B precursor type acute leukaemia
  8. RITUXIMAB [Suspect]
     Active Substance: RITUXIMAB
     Indication: Leukaemia
     Dosage: UNK
     Route: 065
  9. RITUXIMAB [Suspect]
     Active Substance: RITUXIMAB
     Indication: B precursor type acute leukaemia
  10. INOTUZUMAB OZOGAMICIN [Suspect]
     Active Substance: INOTUZUMAB OZOGAMICIN
     Indication: Leukaemia
     Dosage: UNK
     Route: 065
  11. INOTUZUMAB OZOGAMICIN [Suspect]
     Active Substance: INOTUZUMAB OZOGAMICIN
     Indication: B precursor type acute leukaemia

REACTIONS (6)
  - B precursor type acute leukaemia [Fatal]
  - Leukaemia [Fatal]
  - Cytopenia [Unknown]
  - Condition aggravated [Unknown]
  - Infection [Unknown]
  - Toxicity to various agents [Unknown]
